FAERS Safety Report 9719208 (Version 2)
Quarter: 2014Q3

REPORT INFORMATION
  Report Type: Spontaneous
  Country: BR (occurrence: BR)
  Receive Date: 20131127
  Receipt Date: 20140923
  Transmission Date: 20150326
  Serious: No
  Sender: FDA-Public Use
  Company Number: PHHY2013BR136174

PATIENT
  Sex: Male
  Weight: 96 kg

DRUGS (2)
  1. TRILEPTAL [Suspect]
     Active Substance: OXCARBAZEPINE
     Indication: CONVULSION
     Dosage: 0.5 DF, BID (HALF TABLET IN THE MORNING AND HALF TABLET AT NIGHT)
     Route: 048
  2. TRILEPTAL [Suspect]
     Active Substance: OXCARBAZEPINE
     Dosage: DOSE INCREASED

REACTIONS (2)
  - Exposure via father [Unknown]
  - Convulsion [Recovered/Resolved]

NARRATIVE: CASE EVENT DATE: 2014
